FAERS Safety Report 12913355 (Version 1)
Quarter: 2016Q4

REPORT INFORMATION
  Report Type: Spontaneous
  Country: GB (occurrence: GB)
  Receive Date: 20161104
  Receipt Date: 20161104
  Transmission Date: 20170207
  Serious: Yes (Hospitalization)
  Sender: FDA-Public Use
  Company Number: GB-PFIZER INC-2016509524

PATIENT
  Sex: Female

DRUGS (16)
  1. RANITIDINE. [Concomitant]
     Active Substance: RANITIDINE
  2. TOLTERODINE [Concomitant]
     Active Substance: TOLTERODINE
  3. WARFARIN [Concomitant]
     Active Substance: WARFARIN
  4. GABAPENTIN. [Suspect]
     Active Substance: GABAPENTIN
     Indication: PAIN
     Dosage: 100 MG, 3X/DAY
     Route: 048
  5. BUMETANIDE. [Concomitant]
     Active Substance: BUMETANIDE
  6. FERROUS SULFATE. [Concomitant]
     Active Substance: FERROUS SULFATE
  7. BISOPROLOL [Concomitant]
     Active Substance: BISOPROLOL
  8. SALBUTAMOL [Concomitant]
     Active Substance: ALBUTEROL
  9. SERETIDE [Concomitant]
     Active Substance: FLUTICASONE PROPIONATE\SALMETEROL XINAFOATE
  10. HYDROMOL /00906601/ [Concomitant]
  11. RAMIPRIL. [Concomitant]
     Active Substance: RAMIPRIL
  12. CODEINE [Suspect]
     Active Substance: CODEINE
     Indication: PAIN
     Dosage: 30MG FOUR TIMES A DAY AND 30MG FOUR TIMES A DAY WHEN REQUIRED
     Route: 048
  13. DOCUSATE [Concomitant]
     Active Substance: DOCUSATE
  14. EVACAL D3 [Concomitant]
  15. PARACETAMOL [Concomitant]
     Active Substance: ACETAMINOPHEN
  16. PREDNISOLONE. [Concomitant]
     Active Substance: PREDNISOLONE

REACTIONS (2)
  - Product use issue [Unknown]
  - Confusional state [Recovering/Resolving]
